FAERS Safety Report 20573433 (Version 2)
Quarter: 2022Q4

REPORT INFORMATION
  Report Type: Spontaneous
  Country: US (occurrence: US)
  Receive Date: 20220309
  Receipt Date: 20221114
  Transmission Date: 20230113
  Serious: Yes (Life-Threatening, Hospitalization, Other)
  Sender: FDA-Public Use
  Company Number: US-PFIZER INC-202200330280

PATIENT
  Age: 58 Year
  Sex: Male

DRUGS (5)
  1. VORICONAZOLE [Interacting]
     Active Substance: VORICONAZOLE
     Indication: Aspergillus infection
     Dosage: UNK
  2. VENETOCLAX [Interacting]
     Active Substance: VENETOCLAX
     Indication: Chronic lymphocytic leukaemia
     Dosage: 10 MG, DAILY
  3. VENETOCLAX [Interacting]
     Active Substance: VENETOCLAX
     Dosage: INCREASED
  4. VENETOCLAX [Interacting]
     Active Substance: VENETOCLAX
     Dosage: FURTHER INCREASED
  5. VENETOCLAX [Interacting]
     Active Substance: VENETOCLAX
     Dosage: THEN INCREASED

REACTIONS (2)
  - Drug interaction [Recovered/Resolved]
  - Tumour lysis syndrome [Recovered/Resolved]
